FAERS Safety Report 15772591 (Version 2)
Quarter: 2019Q1

REPORT INFORMATION
  Report Type: Spontaneous
  Country: US (occurrence: US)
  Receive Date: 20181228
  Receipt Date: 20190312
  Transmission Date: 20190417
  Serious: No
  Sender: FDA-Public Use
  Company Number: US-SA-2018SA395220

PATIENT
  Age: 20 Year
  Sex: Female
  Weight: 73.47 kg

DRUGS (1)
  1. DUPIXENT [Suspect]
     Active Substance: DUPILUMAB
     Indication: DERMATITIS ATOPIC
     Dosage: 300 MG, QOW
     Route: 058
     Dates: start: 20181119

REACTIONS (6)
  - Eye pruritus [Unknown]
  - Injection site reaction [Unknown]
  - Injection site pain [Unknown]
  - Dry eye [Unknown]
  - Lymphadenopathy [Unknown]
  - Injection site erythema [Unknown]

NARRATIVE: CASE EVENT DATE: 201811
